FAERS Safety Report 8285124-3 (Version None)
Quarter: 2012Q2

REPORT INFORMATION
  Report Type: 
  Country: None (occurrence: None)
  Receive Date: 20120413
  Receipt Date: 20120203
  Transmission Date: 20120825
  Serious: No
  Sender: FDA-Public Use
  Company Number: US-ASTRAZENECA-2012SE07745

PATIENT
  Age: 41 Year
  Sex: Male
  Weight: 86.2 kg

DRUGS (3)
  1. DULCOLAX [Concomitant]
     Indication: CONSTIPATION
  2. NEXIUM [Suspect]
     Indication: ULCER
     Route: 048
     Dates: start: 20120201
  3. ASPIRIN [Concomitant]
     Indication: NASOPHARYNGITIS

REACTIONS (6)
  - PARAESTHESIA [None]
  - APHAGIA [None]
  - CHEST PAIN [None]
  - BACK PAIN [None]
  - ABDOMINAL PAIN [None]
  - FLATULENCE [None]
